FAERS Safety Report 12110542 (Version 1)
Quarter: 2016Q1

REPORT INFORMATION
  Report Type: Not Available
  Country: US (occurrence: US)
  Receive Date: 20160224
  Receipt Date: 20160224
  Transmission Date: 20160526
  Serious: Yes (Death)
  Sender: FDA-Public Use
  Company Number: US-ANIPHARMA-2016-US-000691

PATIENT
  Age: 46 Year
  Sex: Female

DRUGS (4)
  1. PROPRANOLOL HYDROCHLORIDE (NON-SPECIFIC) [Suspect]
     Active Substance: PROPRANOLOL HYDROCHLORIDE
     Dosage: 40 MG
     Route: 048
  2. UNSPECIFIED STEROIDS [Concomitant]
     Active Substance: UNSPECIFIED INGREDIENT
     Route: 042
  3. METHIMAZOLE. [Concomitant]
     Active Substance: METHIMAZOLE
     Dosage: 30 MG
     Route: 048
  4. POTASSIUM IODIDE [Concomitant]
     Active Substance: POTASSIUM IODIDE
     Dosage: 5 G IN 5 ML
     Route: 048

REACTIONS (2)
  - Cardiac arrest [Fatal]
  - Multiple organ dysfunction syndrome [Fatal]
